FAERS Safety Report 23921343 (Version 1)
Quarter: 2024Q2

REPORT INFORMATION
  Report Type: Spontaneous
  Country: CN (occurrence: CN)
  Receive Date: 20240530
  Receipt Date: 20240530
  Transmission Date: 20240715
  Serious: Yes (Other)
  Sender: FDA-Public Use
  Company Number: CN-DSJP-DSJ-2024-123321

PATIENT
  Age: 73 Year
  Sex: Female
  Weight: 60 kg

DRUGS (1)
  1. EDOXABAN [Suspect]
     Active Substance: EDOXABAN
     Indication: Cerebral infarction
     Dosage: 60 MG, QD
     Route: 048
     Dates: start: 20240516, end: 20240517

REACTIONS (1)
  - Coagulation test abnormal [Recovering/Resolving]

NARRATIVE: CASE EVENT DATE: 20240517
